FAERS Safety Report 22289432 (Version 1)
Quarter: 2023Q2

REPORT INFORMATION
  Report Type: Spontaneous
  Country: PT (occurrence: PT)
  Receive Date: 20230505
  Receipt Date: 20230505
  Transmission Date: 20230722
  Serious: Yes (Other)
  Sender: FDA-Public Use
  Company Number: PT-009507513-2303PRT003365

PATIENT
  Age: 57 Year
  Sex: Male

DRUGS (2)
  1. AXITINIB [Suspect]
     Active Substance: AXITINIB
     Dosage: UNK
  2. PEMBROLIZUMAB [Suspect]
     Active Substance: PEMBROLIZUMAB
     Indication: Clear cell renal cell carcinoma
     Dosage: UNK

REACTIONS (2)
  - Hepatotoxicity [Recovering/Resolving]
  - Hepatitis [Recovering/Resolving]
